FAERS Safety Report 9838410 (Version 1)
Quarter: 2014Q1

REPORT INFORMATION
  Report Type: Spontaneous
  Country: US (occurrence: US)
  Receive Date: 20140123
  Receipt Date: 20140123
  Transmission Date: 20141002
  Serious: No
  Sender: FDA-Public Use
  Company Number: US-GILEAD-2011-0045384

PATIENT
  Age: 18 Year
  Sex: Female

DRUGS (1)
  1. CAYSTON [Suspect]
     Indication: PRODUCT USED FOR UNKNOWN INDICATION

REACTIONS (6)
  - Swelling face [Unknown]
  - Lip swelling [None]
  - Swollen tongue [None]
  - Eye swelling [None]
  - Local swelling [None]
  - Rash [Unknown]
